FAERS Safety Report 24258677 (Version 1)
Quarter: 2024Q3

REPORT INFORMATION
  Report Type: Spontaneous
  Country: TR (occurrence: TR)
  Receive Date: 20240828
  Receipt Date: 20240828
  Transmission Date: 20241016
  Serious: Yes (Other)
  Sender: SANDOZ
  Company Number: TR-002147023-NVSC2024TR171730

PATIENT
  Age: 6 Year
  Sex: Male

DRUGS (6)
  1. METHYLPHENIDATE [Interacting]
     Active Substance: METHYLPHENIDATE
     Dosage: 10 MG, QD (EXTENDED RELEASE)
     Route: 065
     Dates: start: 202209
  2. METHYLPHENIDATE [Interacting]
     Active Substance: METHYLPHENIDATE
     Indication: Attention deficit hyperactivity disorder
     Dosage: 10 MG, QD (IMMEDIATE RELEASE)
     Route: 065
     Dates: start: 202205
  3. METHYLPHENIDATE [Interacting]
     Active Substance: METHYLPHENIDATE
     Dosage: 20 MG, QD (EXTENDED RELEASE)
     Route: 065
     Dates: start: 202305
  4. METHYLPHENIDATE [Interacting]
     Active Substance: METHYLPHENIDATE
     Dosage: 20 MG, QD (IMMEDIATE RELEASE)
     Route: 065
     Dates: start: 202206, end: 202209
  5. METHYLPHENIDATE [Interacting]
     Active Substance: METHYLPHENIDATE
     Dosage: 30 MG, QD (LONG ACTING)
     Route: 065
     Dates: start: 202310
  6. RISPERIDONE [Interacting]
     Active Substance: RISPERIDONE
     Indication: Attention deficit hyperactivity disorder
     Dosage: 0.25 MG, QD
     Route: 065
     Dates: start: 202208

REACTIONS (8)
  - Withdrawal syndrome [Unknown]
  - Gaze palsy [Unknown]
  - Gait disturbance [Unknown]
  - Dystonia [Unknown]
  - Muscle contractions involuntary [Unknown]
  - Dyskinesia [Unknown]
  - Drug interaction [Unknown]
  - Product dose omission issue [Unknown]
